FAERS Safety Report 13406346 (Version 2)
Quarter: 2017Q2

REPORT INFORMATION
  Report Type: Report from Study
  Country: US (occurrence: US)
  Receive Date: 20170405
  Receipt Date: 20170616
  Transmission Date: 20170830
  Serious: Yes (Other)
  Sender: FDA-Public Use
  Company Number: US-BAYER-2017-057556

PATIENT
  Age: 52 Year
  Sex: Male
  Weight: 83.4 kg

DRUGS (5)
  1. NEXAVAR [Suspect]
     Active Substance: SORAFENIB
     Indication: METASTASES TO LUNG
  2. NEXAVAR [Suspect]
     Active Substance: SORAFENIB
     Indication: PAPILLARY THYROID CANCER
  3. NEXAVAR [Suspect]
     Active Substance: SORAFENIB
     Indication: METASTASES TO LYMPH NODES
     Dosage: 200 MG, BID
     Route: 048
     Dates: start: 2017
  4. NEXAVAR [Suspect]
     Active Substance: SORAFENIB
     Indication: THYROID CANCER
     Dosage: 400 MG, BID
     Route: 048
     Dates: start: 20170307, end: 20170324
  5. MEDROL [METHYLPREDNISOLONE] [Concomitant]

REACTIONS (9)
  - Pain of skin [None]
  - Face oedema [Recovering/Resolving]
  - Dyspnoea [None]
  - Cough [Recovered/Resolved]
  - Nodule [None]
  - Dysphonia [Not Recovered/Not Resolved]
  - Alopecia [None]
  - Fatigue [None]
  - Drug hypersensitivity [None]

NARRATIVE: CASE EVENT DATE: 2017
